FAERS Safety Report 6882031-5 (Version None)
Quarter: 2010Q3

REPORT INFORMATION
  Report Type: 
  Country: None (occurrence: None)
  Receive Date: 20100728
  Receipt Date: 20100728
  Transmission Date: 20110219
  Serious: Yes (Hospitalization)
  Sender: FDA-Public Use
  Company Number: None

PATIENT
  Age: 32 Year
  Sex: Male
  Weight: 70.3075 kg

DRUGS (1)
  1. MEIJER NASAL DECONGESTANT 30 MG MFR. PERRIGO [Suspect]
     Indication: SEASONAL ALLERGY
     Dosage: 1 - TABLET TWICE DAILY,  APPROX. 2 1/2 YRS, BOX PURCHASED APPROX JUNE 8

REACTIONS (6)
  - BLOOD PRESSURE DIASTOLIC DECREASED [None]
  - CHEST PAIN [None]
  - DYSPNOEA [None]
  - LETHARGY [None]
  - PRESYNCOPE [None]
  - VERTIGO [None]
